FAERS Safety Report 5759561-2 (Version None)
Quarter: 2008Q2

REPORT INFORMATION
  Report Type: 
  Country: None (occurrence: None)
  Receive Date: 20080605
  Receipt Date: 20080528
  Transmission Date: 20081010
  Serious: Yes (Hospitalization, Other)
  Sender: FDA-Public Use
  Company Number: US-TYCO HEALTHCARE/MALLINCKRODT-T200800861

PATIENT

DRUGS (3)
  1. METHADONE HCL [Suspect]
     Indication: ROTATOR CUFF SYNDROME
     Dosage: 10 MG, BID
     Route: 048
     Dates: start: 20080401, end: 20080401
  2. METHADONE HCL [Suspect]
     Route: 048
     Dates: start: 20080401, end: 20080401
  3. ALCOHOL                            /00002101/ [Suspect]
     Dates: start: 20080401, end: 20080401

REACTIONS (3)
  - OVERDOSE [None]
  - PNEUMONIA ASPIRATION [None]
  - RESPIRATORY ARREST [None]
